FAERS Safety Report 10474418 (Version 3)
Quarter: 2014Q4

REPORT INFORMATION
  Report Type: Spontaneous
  Country: US (occurrence: US)
  Receive Date: 20140924
  Receipt Date: 20141023
  Transmission Date: 20150528
  Serious: Yes (Hospitalization, Other)
  Sender: FDA-Public Use
  Company Number: US-PFIZER INC-2014263225

PATIENT
  Age: 76 Year
  Sex: Male

DRUGS (1)
  1. TIKOSYN [Suspect]
     Active Substance: DOFETILIDE
     Dosage: UNK

REACTIONS (6)
  - Fatigue [Unknown]
  - Memory impairment [Unknown]
  - Malaise [Unknown]
  - Cardiac disorder [Unknown]
  - Pulmonary fibrosis [Unknown]
  - Chest pain [Unknown]
